FAERS Safety Report 9433805 (Version 2)
Quarter: 2013Q3

REPORT INFORMATION
  Report Type: Report from Study
  Country: BR (occurrence: BR)
  Receive Date: 20130731
  Receipt Date: 20130902
  Transmission Date: 20140515
  Serious: Yes (Other)
  Sender: FDA-Public Use
  Company Number: PHHY2013BR080848

PATIENT
  Sex: Male

DRUGS (4)
  1. EXELON [Suspect]
     Dosage: UNK UKN, UNK
  2. STALEVO [Suspect]
     Dosage: 1 DF, QD
     Dates: start: 2000
  3. STALEVO [Suspect]
     Dosage: 2 DF (OF 6 MG), QD
  4. STALEVO [Suspect]
     Dosage: 3 DF, QD

REACTIONS (2)
  - Dementia Alzheimer^s type [Unknown]
  - Petit mal epilepsy [Unknown]
